FAERS Safety Report 17827953 (Version 1)
Quarter: 2020Q2

REPORT INFORMATION
  Report Type: Spontaneous
  Country: US (occurrence: US)
  Receive Date: 20200526
  Receipt Date: 20200526
  Transmission Date: 20200714
  Serious: Yes (Hospitalization)
  Sender: FDA-Public Use
  Company Number: None

PATIENT
  Age: 41 Year
  Sex: Female
  Weight: 73.5 kg

DRUGS (7)
  1. TOPROL XL 25MG [Concomitant]
     Dates: start: 20200504
  2. EFFEXOR [Concomitant]
     Active Substance: VENLAFAXINE HYDROCHLORIDE
     Dates: start: 20190701
  3. MORPHINE 15MG [Concomitant]
     Active Substance: MORPHINE
     Dates: start: 20191202
  4. BUSPAR 10MG [Concomitant]
     Dates: start: 20190701
  5. PEMBROLIZUMAB. [Suspect]
     Active Substance: PEMBROLIZUMAB
     Indication: CERVIX CARCINOMA
     Dosage: ?          OTHER FREQUENCY:EVERY 21 DAYS;?
     Route: 042
     Dates: start: 20200302
  6. SINGULAIR [Concomitant]
     Active Substance: MONTELUKAST SODIUM
     Dates: start: 20190101
  7. AMITRIPTYLINE [Concomitant]
     Active Substance: AMITRIPTYLINE
     Dates: start: 20200203

REACTIONS (2)
  - Pelvic fluid collection [None]
  - Pain in extremity [None]

NARRATIVE: CASE EVENT DATE: 20200521
